FAERS Safety Report 11717143 (Version 2)
Quarter: 2016Q1

REPORT INFORMATION
  Report Type: Spontaneous
  Country: US (occurrence: None)
  Receive Date: 20151109
  Receipt Date: 20160121
  Transmission Date: 20160525
  Serious: Yes (Other)
  Sender: FDA-Public Use
  Company Number: US-MDT-ADR-2015-02104

PATIENT
  Age: 16 Year
  Sex: Female

DRUGS (1)
  1. LIORESAL [Suspect]
     Active Substance: BACLOFEN
     Indication: MUSCLE SPASTICITY
     Dosage: 944.7 MCG

REACTIONS (5)
  - Device malfunction [None]
  - Dystonia [None]
  - Muscle spasticity [None]
  - Therapeutic response decreased [None]
  - Device occlusion [None]
